FAERS Safety Report 25001569 (Version 1)
Quarter: 2025Q1

REPORT INFORMATION
  Report Type: Spontaneous
  Country: JP (occurrence: JP)
  Receive Date: 20250223
  Receipt Date: 20250223
  Transmission Date: 20250409
  Serious: Yes (Other)
  Sender: SANDOZ
  Company Number: JP-SANDOZ INC.-SDZ2025JP010791

PATIENT
  Age: 76 Year
  Sex: Female
  Weight: 42 kg

DRUGS (2)
  1. METHOTREXATE [Suspect]
     Active Substance: METHOTREXATE
     Indication: Rheumatoid arthritis
     Route: 048
  2. CELECOXIB [Concomitant]
     Active Substance: CELECOXIB
     Indication: Rheumatoid arthritis
     Route: 065

REACTIONS (2)
  - Lymphoproliferative disorder [Recovered/Resolved]
  - Compression fracture [Recovered/Resolved]
